FAERS Safety Report 9747664 (Version 1)
Quarter: 2013Q4

REPORT INFORMATION
  Report Type: Spontaneous
  Country: FR (occurrence: None)
  Receive Date: 20131206
  Receipt Date: 20131206
  Transmission Date: 20140711
  Serious: Yes (Hospitalization, Other)
  Sender: FDA-Public Use
  Company Number: FK201305122

PATIENT
  Age: 29 Year
  Sex: Female

DRUGS (2)
  1. BUPIVACAINE (MANUFACTURER UNKNOWN) (BUPIVACAINE) (BUPIVACAINE) [Suspect]
     Indication: ANAESTHESIA
     Dosage: 10 MG, UNKNOWN, INTRATHECAL
  2. FENTANYL (FENTANYL) [Suspect]
     Indication: ANAESTHESIA
     Route: 037

REACTIONS (2)
  - Ischaemic cerebral infarction [None]
  - Hypotension [None]
